FAERS Safety Report 5808099-2 (Version None)
Quarter: 2008Q3

REPORT INFORMATION
  Report Type: 
  Country: None (occurrence: None)
  Receive Date: 20080708
  Receipt Date: 20080623
  Transmission Date: 20090109
  Serious: Yes (Other)
  Sender: FDA-Public Use
  Company Number: 430001L08TUN

PATIENT
  Age: 41 Year
  Sex: Male

DRUGS (5)
  1. MITOXANTRONE HYDROCHLORIDE [Suspect]
     Indication: ACUTE PROMYELOCYTIC LEUKAEMIA
     Dosage: 10 MG/M2, 1 IN 1 DAYS
  2. IDARUBICIN HCL [Suspect]
     Indication: ACUTE PROMYELOCYTIC LEUKAEMIA
     Dosage: SEE IMAGE
     Route: 042
  3. METHOTREXATE [Suspect]
     Indication: ACUTE PROMYELOCYTIC LEUKAEMIA
     Dosage: 15 MG/M2, 1 IN 1 WEEKS, ORAL
     Route: 048
  4. MERCAPTOPURINE [Suspect]
     Indication: ACUTE PROMYELOCYTIC LEUKAEMIA
     Dosage: 50 MG/M2, 1 IN 1 DAYS, ORAL
     Route: 048
  5. TRETINOIN [Suspect]
     Dosage: 45 MG/M2, 2 IN 1 DAYS, ORAL : 45 MG/M2 : 45 MG/M2, 1 DAYS, ORAL
     Route: 048

REACTIONS (1)
  - CHRONIC MYELOMONOCYTIC LEUKAEMIA [None]
